FAERS Safety Report 20964593 (Version 1)
Quarter: 2022Q2

REPORT INFORMATION
  Report Type: Report from Study
  Country: IN (occurrence: IN)
  Receive Date: 20220615
  Receipt Date: 20220615
  Transmission Date: 20220720
  Serious: Yes (Death)
  Sender: FDA-Public Use
  Company Number: IN-KARYOPHARM-2022KPT000661

PATIENT
  Age: 66 Year
  Sex: Male

DRUGS (2)
  1. SELINEXOR [Suspect]
     Active Substance: SELINEXOR
     Indication: Plasma cell myeloma
     Dosage: UNK
     Dates: start: 202205, end: 2022
  2. CARFILZOMIB;DEXAMETHASONE [Concomitant]
     Dosage: 54 MG, 2X/WEEK ON TWO CONSECUTIVE DAYS

REACTIONS (1)
  - Plasma cell myeloma [Fatal]
